FAERS Safety Report 7207375-9 (Version None)
Quarter: 2010Q4

REPORT INFORMATION
  Report Type: 
  Country: None (occurrence: None)
  Receive Date: 20101221
  Receipt Date: 20101214
  Transmission Date: 20110411
  Serious: Yes (Other)
  Sender: FDA-Public Use
  Company Number: TRP_07455_2010

PATIENT

DRUGS (4)
  1. RIBAVIRIN [Suspect]
     Indication: HEPATITIS C
     Dosage: (12-15 MG/KG/DAY ORAL), (12-15 MG/KG/DAY ORAL)
     Route: 048
  2. RIBAVIRIN [Suspect]
     Indication: HEPATITIS C
     Dosage: (12-15 MG/KG/DAY ORAL), (12-15 MG/KG/DAY ORAL)
     Route: 048
  3. PEGINTERFERON ALFA-2B [Suspect]
     Indication: HEPATITIS C
     Dosage: (1.5 UG/KG 1X/WEEK SUBCUTANEOUS), (1.5 UG/KG 1X/WEEK SUBCUTANEOUS)
     Route: 058
  4. PEGINTERFERON ALFA-2B [Suspect]
     Indication: HEPATITIS C
     Dosage: (1.5 UG/KG 1X/WEEK SUBCUTANEOUS), (1.5 UG/KG 1X/WEEK SUBCUTANEOUS)
     Route: 058

REACTIONS (6)
  - ARTHRALGIA [None]
  - HAEMOLYTIC ANAEMIA [None]
  - INFLUENZA LIKE ILLNESS [None]
  - PAIN [None]
  - PROTEINURIA [None]
  - SWELLING FACE [None]
